FAERS Safety Report 19262187 (Version 2)
Quarter: 2021Q3

REPORT INFORMATION
  Report Type: Spontaneous
  Country: CA (occurrence: CA)
  Receive Date: 20210516
  Receipt Date: 20210721
  Transmission Date: 20211014
  Serious: Yes (Death, Hospitalization)
  Sender: FDA-Public Use
  Company Number: CA-TEVA-2021-CA-1910153

PATIENT
  Age: 24 Year
  Sex: Female

DRUGS (3)
  1. GABAPENTIN. [Suspect]
     Active Substance: GABAPENTIN
     Indication: OVERDOSE
     Route: 048
  2. N?ACETYL?P?AMINOPHENOL [Suspect]
     Active Substance: ACETAMINOPHEN
     Indication: OVERDOSE
     Dosage: N?ACETYL?P?AMINOPHENOL
     Route: 048
  3. MORPHINE [Concomitant]
     Active Substance: MORPHINE
     Indication: PRODUCT USED FOR UNKNOWN INDICATION
     Route: 048

REACTIONS (13)
  - Diffuse axonal injury [Fatal]
  - Overdose [Fatal]
  - Encephalopathy [Fatal]
  - Cerebral haemorrhage [Fatal]
  - Coagulopathy [Fatal]
  - Depressed level of consciousness [Fatal]
  - Ileus [Fatal]
  - Brain oedema [Fatal]
  - Lactic acidosis [Fatal]
  - Hypoglycaemia [Fatal]
  - Mental status changes [Fatal]
  - Toxicity to various agents [Fatal]
  - Acute hepatic failure [Fatal]
